FAERS Safety Report 4608691-7 (Version None)
Quarter: 2005Q1

REPORT INFORMATION
  Report Type: 
  Country: None (occurrence: None)
  Receive Date: 20050315
  Receipt Date: 20050117
  Transmission Date: 20050727
  Serious: Yes (Other)
  Sender: FDA-Public Use
  Company Number: DE-ROCHE-392790

PATIENT
  Age: 67 Year
  Sex: Female
  Weight: 88 kg

DRUGS (1)
  1. XELODA [Suspect]
     Route: 048
     Dates: start: 20041228, end: 20050103

REACTIONS (12)
  - ALOPECIA [None]
  - CHAPPED LIPS [None]
  - CYTOGENETIC ANALYSIS ABNORMAL [None]
  - DRUG INTOLERANCE [None]
  - DYSPHAGIA [None]
  - DYSPHONIA [None]
  - FACE OEDEMA [None]
  - MOUTH ULCERATION [None]
  - MUCOSAL INFLAMMATION [None]
  - PHARYNGOLARYNGEAL PAIN [None]
  - SWELLING FACE [None]
  - VAGINAL INFECTION [None]
